FAERS Safety Report 12208084 (Version 1)
Quarter: 2016Q1

REPORT INFORMATION
  Report Type: Spontaneous
  Country: US (occurrence: US)
  Receive Date: 20160324
  Receipt Date: 20160324
  Transmission Date: 20160526
  Serious: No
  Sender: FDA-Public Use
  Company Number: US-WARNER CHILCOTT, LLC-1049606

PATIENT
  Age: 81 Year
  Sex: Female

DRUGS (5)
  1. LEVOTHYROXINE. [Concomitant]
     Active Substance: LEVOTHYROXINE
  2. ESTRACE [Suspect]
     Active Substance: ESTRADIOL
     Route: 067
     Dates: start: 20150903, end: 20150905
  3. COUMADIN [Concomitant]
     Active Substance: WARFARIN SODIUM
  4. TYLENOL EXTRA STRENGTH [Concomitant]
     Active Substance: ACETAMINOPHEN
  5. ESTRACE [Suspect]
     Active Substance: ESTRADIOL
     Indication: BLADDER PROLAPSE
     Route: 067
     Dates: start: 20150902, end: 20150902

REACTIONS (4)
  - Palpitations [Recovering/Resolving]
  - Dizziness [Not Recovered/Not Resolved]
  - Dyspnoea [Recovering/Resolving]
  - Product use issue [None]
